FAERS Safety Report 7232334-X (Version None)
Quarter: 2011Q1

REPORT INFORMATION
  Report Type: 
  Country: None (occurrence: None)
  Receive Date: 20110119
  Receipt Date: 20110105
  Transmission Date: 20110831
  Serious: Yes (Other)
  Sender: FDA-Public Use
  Company Number: GB-RANBAXY-2011RR-41022

PATIENT
  Age: 90 Month
  Sex: Male

DRUGS (1)
  1. CLARITHROMYCIN 250MG/5ML ORAL SUSPENSION [Suspect]
     Indication: LOWER RESPIRATORY TRACT INFECTION
     Dosage: UNK

REACTIONS (4)
  - ANXIETY [None]
  - CONFUSIONAL STATE [None]
  - PSYCHOTIC BEHAVIOUR [None]
  - NERVOUSNESS [None]
